FAERS Safety Report 7720139-2 (Version None)
Quarter: 2011Q3

REPORT INFORMATION
  Report Type: 
  Country: None (occurrence: None)
  Receive Date: 20110831
  Receipt Date: 20110824
  Transmission Date: 20111222
  Serious: Yes (Hospitalization)
  Sender: FDA-Public Use
  Company Number: JP-EISAI INC-E2020-09569-SPO-JP

PATIENT
  Age: 69 Year
  Sex: Male
  Weight: 62 kg

DRUGS (9)
  1. MAGNESIUM SULFATE [Concomitant]
     Route: 048
  2. LIPITOR [Concomitant]
     Indication: HYPERLIPIDAEMIA
     Route: 048
  3. PURSENNID [Concomitant]
     Indication: CONSTIPATION
     Route: 048
  4. ARICEPT [Suspect]
     Indication: DEMENTIA ALZHEIMER'S TYPE
     Route: 048
     Dates: start: 20110721, end: 20110727
  5. PLAVIX [Concomitant]
     Indication: CEREBRAL INFARCTION
     Route: 048
  6. ATELEC [Concomitant]
     Indication: DIABETES MELLITUS
     Route: 048
  7. AMARYL [Concomitant]
     Indication: DIABETES MELLITUS
     Route: 048
  8. ASPIRIN [Concomitant]
     Indication: CEREBRAL INFARCTION
     Route: 048
     Dates: end: 20110804
  9. DORAL [Concomitant]
     Route: 048

REACTIONS (4)
  - CEREBRAL INFARCTION [None]
  - NAUSEA [None]
  - DIPLOPIA [None]
  - DIARRHOEA [None]
